FAERS Safety Report 16250439 (Version 1)
Quarter: 2019Q2

REPORT INFORMATION
  Report Type: Spontaneous
  Country: US (occurrence: US)
  Receive Date: 20190426
  Receipt Date: 20190426
  Transmission Date: 20190711
  Serious: No
  Sender: FDA-Public Use
  Company Number: None

PATIENT
  Age: 63 Year
  Sex: Female
  Weight: 94.5 kg

DRUGS (1)
  1. ENOXAPARIN [Suspect]
     Active Substance: ENOXAPARIN
     Indication: PROPHYLAXIS
     Route: 058
     Dates: start: 20190326, end: 20190423

REACTIONS (6)
  - Chills [None]
  - Pain of skin [None]
  - Skin exfoliation [None]
  - Fatigue [None]
  - Burning sensation [None]
  - Hypersensitivity [None]

NARRATIVE: CASE EVENT DATE: 20190424
